FAERS Safety Report 21925622 (Version 2)
Quarter: 2023Q1

REPORT INFORMATION
  Report Type: Spontaneous
  Country: US (occurrence: US)
  Receive Date: 20230130
  Receipt Date: 20230302
  Transmission Date: 20230418
  Serious: Yes (Death)
  Sender: FDA-Public Use
  Company Number: US-CELLTRION INC.-2023US001548

PATIENT

DRUGS (1)
  1. TRUXIMA [Suspect]
     Active Substance: RITUXIMAB-ABBS
     Indication: Microscopic polyangiitis
     Dosage: 375 MILLIGRAM ONCE A WEEK EVERY 4 WEEKS
     Dates: start: 20220324

REACTIONS (1)
  - Death [Fatal]
